FAERS Safety Report 7260294-4 (Version None)
Quarter: 2011Q1

REPORT INFORMATION
  Report Type: 
  Country: None (occurrence: None)
  Receive Date: 20110130
  Receipt Date: 20100910
  Transmission Date: 20110831
  Serious: Yes (Hospitalization)
  Sender: FDA-Public Use
  Company Number: US-ABBOTT-10P-163-0670238-00

PATIENT
  Sex: Female
  Weight: 76.726 kg

DRUGS (4)
  1. HUMIRA [Suspect]
     Dates: start: 20100714, end: 20100714
  2. HUMIRA [Suspect]
     Indication: CROHN'S DISEASE
     Dates: start: 20100630, end: 20100630
  3. HUMIRA [Suspect]
     Dates: start: 20100728, end: 20100728
  4. LIALDA [Concomitant]
     Indication: CROHN'S DISEASE
     Dates: start: 20100101

REACTIONS (3)
  - LUNG NEOPLASM [None]
  - MUSCULOSKELETAL PAIN [None]
  - LUNG DISORDER [None]
